FAERS Safety Report 25069407 (Version 1)
Quarter: 2025Q1

REPORT INFORMATION
  Report Type: Spontaneous
  Country: CA (occurrence: CA)
  Receive Date: 20250312
  Receipt Date: 20250312
  Transmission Date: 20250409
  Serious: Yes (Hospitalization, Other)
  Sender: HIKMA
  Company Number: CA-HIKMA PHARMACEUTICALS USA INC.-CA-H14001-25-02043

PATIENT

DRUGS (5)
  1. AZACITIDINE [Suspect]
     Active Substance: AZACITIDINE
     Indication: Product used for unknown indication
     Dosage: 110 MILLIGRAM, QD
     Route: 065
  2. AZACITIDINE [Suspect]
     Active Substance: AZACITIDINE
     Dosage: 110 MILLIGRAM, QD
     Route: 065
  3. VENETOCLAX [Suspect]
     Active Substance: VENETOCLAX
     Indication: Acute myeloid leukaemia
     Dosage: 50 MILLIGRAM, QD
     Route: 048
  4. COVID-19 VACCINE MRNA [Concomitant]
     Indication: COVID-19 prophylaxis
     Route: 065
  5. PIPERACILLIN AND TAZOBACTAM [Concomitant]
     Active Substance: PIPERACILLIN SODIUM\TAZOBACTAM SODIUM
     Indication: Influenza like illness
     Route: 065

REACTIONS (1)
  - Influenza like illness [Recovered/Resolved]
